FAERS Safety Report 10459880 (Version 1)
Quarter: 2014Q3

REPORT INFORMATION
  Report Type: Report from Study
  Country: BR (occurrence: BR)
  Receive Date: 20140917
  Receipt Date: 20140917
  Transmission Date: 20150326
  Serious: Yes (Hospitalization, Other)
  Sender: FDA-Public Use
  Company Number: PHHY2014BR114829

PATIENT
  Age: 77 Year
  Sex: Female
  Weight: 63.3 kg

DRUGS (11)
  1. ONBREZ [Suspect]
     Active Substance: INDACATEROL
     Indication: COUGH
     Dosage: 150 UG, DAILY
     Route: 055
     Dates: start: 20140804
  2. ONBREZ [Suspect]
     Active Substance: INDACATEROL
     Indication: CHEST DISCOMFORT
  3. ONBREZ [Suspect]
     Active Substance: INDACATEROL
     Indication: DYSPNOEA
  4. PREDSIM [Suspect]
     Active Substance: PREDNISOLONE
     Indication: DYSPNOEA
     Dosage: UNK UKN, UNK
  5. PREDSIM [Suspect]
     Active Substance: PREDNISOLONE
     Indication: SECRETION DISCHARGE
  6. PREDSIM [Suspect]
     Active Substance: PREDNISOLONE
     Indication: COUGH
  7. ATENOLOL. [Concomitant]
     Active Substance: ATENOLOL
     Indication: BLOOD PRESSURE
     Dosage: UNK UKN, UNK
  8. METFORMIN [Concomitant]
     Active Substance: METFORMIN HYDROCHLORIDE
     Indication: DIABETES MELLITUS
     Dosage: UNK UKN, UNK
  9. LOSARTAN [Concomitant]
     Active Substance: LOSARTAN
     Indication: BLOOD PRESSURE
     Dosage: UNK UKN, UNK
  10. HYDROCHLOROTHIAZIDE. [Concomitant]
     Active Substance: HYDROCHLOROTHIAZIDE
     Indication: BLOOD PRESSURE
     Dosage: HALF TABLET
  11. ONBREZ [Suspect]
     Active Substance: INDACATEROL
     Indication: SECRETION DISCHARGE

REACTIONS (3)
  - Device dislocation [Recovered/Resolved]
  - Movement disorder [Recovered/Resolved]
  - Pain in extremity [Recovered/Resolved]

NARRATIVE: CASE EVENT DATE: 20140819
